FAERS Safety Report 25652870 (Version 1)
Quarter: 2025Q3

REPORT INFORMATION
  Report Type: Spontaneous
  Country: US (occurrence: US)
  Receive Date: 20250807
  Receipt Date: 20250807
  Transmission Date: 20251021
  Serious: No
  Sender: BIOCON
  Company Number: US-BIOCON-BCN-2025-000237

PATIENT
  Age: 35 Year
  Sex: Male
  Weight: 97.52 kg

DRUGS (3)
  1. MYCOPHENOLIC ACID [Suspect]
     Active Substance: MYCOPHENOLIC ACID
     Indication: Prophylaxis against transplant rejection
     Dosage: 3 TABLETS TWICE A DAY; DELAYED-RELEASE TABLETS
     Dates: start: 202501
  2. TACROLIMUS [Concomitant]
     Active Substance: TACROLIMUS
     Indication: Prophylaxis against transplant rejection
     Dosage: 1.5 MG TABLETS IN MORNING AND 1 MG TABLETS AT NIGHT
     Dates: start: 2005
  3. PREDNISONE [Concomitant]
     Active Substance: PREDNISONE
     Indication: Prophylaxis against transplant rejection
     Dosage: 5 MG TABLETS ONCE A DAY
     Dates: start: 2005

REACTIONS (4)
  - Eating disorder [Not Recovered/Not Resolved]
  - Fatigue [Not Recovered/Not Resolved]
  - Nausea [Not Recovered/Not Resolved]
  - Product substitution issue [Unknown]

NARRATIVE: CASE EVENT DATE: 20250728
